FAERS Safety Report 13021037 (Version 1)
Quarter: 2016Q4

REPORT INFORMATION
  Report Type: Spontaneous
  Country: US (occurrence: US)
  Receive Date: 20161209
  Receipt Date: 20161209
  Transmission Date: 20170207
  Serious: No
  Sender: FDA-Public Use
  Company Number: None

PATIENT
  Age: 58 Year
  Sex: Female

DRUGS (1)
  1. METHOTREXATE 25MG/ML TEVA PHARMACEUTICALS, USA [Suspect]
     Active Substance: METHOTREXATE
     Indication: VULVITIS
     Route: 058
     Dates: start: 20151118

REACTIONS (1)
  - Muscle spasms [None]

NARRATIVE: CASE EVENT DATE: 20160329
